FAERS Safety Report 16066609 (Version 1)
Quarter: 2019Q1

REPORT INFORMATION
  Report Type: Spontaneous
  Country: US (occurrence: US)
  Receive Date: 20190313
  Receipt Date: 20190313
  Transmission Date: 20190418
  Serious: Yes (Hospitalization, Other)
  Sender: FDA-Public Use
  Company Number: US-JNJFOC-20190309906

PATIENT
  Sex: Male
  Weight: 110 kg

DRUGS (1)
  1. ZYTIGA [Suspect]
     Active Substance: ABIRATERONE ACETATE
     Indication: PROSTATE CANCER METASTATIC
     Route: 048

REACTIONS (4)
  - Prostate cancer metastatic [Not Recovered/Not Resolved]
  - Dysphagia [Not Recovered/Not Resolved]
  - Adverse event [Unknown]
  - Haemoptysis [Unknown]
